FAERS Safety Report 9657780 (Version 1)
Quarter: 2013Q4

REPORT INFORMATION
  Report Type: Spontaneous
  Country: US (occurrence: US)
  Receive Date: 20131030
  Receipt Date: 20131030
  Transmission Date: 20140711
  Serious: Yes (Other)
  Sender: FDA-Public Use
  Company Number: CHPA2013US016384

PATIENT
  Sex: Female

DRUGS (1)
  1. PRIVATE LABEL STRENGTH UNKNOWN [Suspect]
     Route: 062

REACTIONS (3)
  - Cerebrovascular accident [Unknown]
  - Treatment noncompliance [Unknown]
  - Overdose [Unknown]
